FAERS Safety Report 18552856 (Version 2)
Quarter: 2021Q3

REPORT INFORMATION
  Report Type: Spontaneous
  Country: US (occurrence: US)
  Receive Date: 20201127
  Receipt Date: 20210811
  Transmission Date: 20211014
  Serious: Yes (Hospitalization)
  Sender: FDA-Public Use
  Company Number: US-AUROBINDO-AUR-APL-2020-058442

PATIENT
  Age: 54 Year
  Sex: Male

DRUGS (2)
  1. METHADONE [Suspect]
     Active Substance: METHADONE HYDROCHLORIDE
     Indication: BACK PAIN
     Dosage: 65 MILLIGRAM, ONCE A DAY (50MG IN MORNING AND 15MG AT BEDTIME)
     Route: 065
  2. METHADONE [Suspect]
     Active Substance: METHADONE HYDROCHLORIDE
     Dosage: 65 MILLIGRAM, ONCE A DAY(30MG IN MORNING AND 35MG AT BEDTIME)
     Route: 065

REACTIONS (1)
  - Hypoglycaemia [Recovered/Resolved]
